FAERS Safety Report 6723388-5 (Version None)
Quarter: 2010Q2

REPORT INFORMATION
  Report Type: 
  Country: None (occurrence: None)
  Receive Date: 20100513
  Receipt Date: 20100120
  Transmission Date: 20101027
  Serious: No
  Sender: FDA-Public Use
  Company Number: US-ABBOTT-10P-163-0621992-00

PATIENT
  Weight: 65.83 kg

DRUGS (4)
  1. GENGRAF [Suspect]
     Indication: RENAL TRANSPLANT
     Dates: start: 20040101
  2. GENGRAF [Suspect]
     Dosage: 125 MG DAILY
     Dates: start: 20091101
  3. GENGRAF [Suspect]
     Dosage: 175MG DAILY
     Dates: start: 20091201
  4. GENGRAF [Suspect]
     Dosage: 250 MG DAILY
     Dates: start: 20100101

REACTIONS (3)
  - BLOOD CREATININE INCREASED [None]
  - DIABETES MELLITUS [None]
  - WEIGHT DECREASED [None]
